FAERS Safety Report 14561018 (Version 1)
Quarter: 2018Q1

REPORT INFORMATION
  Report Type: Spontaneous
  Country: JP (occurrence: JP)
  Receive Date: 20180222
  Receipt Date: 20180222
  Transmission Date: 20180509
  Serious: Yes (Hospitalization)
  Sender: FDA-Public Use
  Company Number: JP-ASTELLAS-2018JP003070

PATIENT

DRUGS (6)
  1. PROGRAF [Suspect]
     Active Substance: TACROLIMUS\TACROLIMUS ANHYDROUS
     Indication: FOETAL EXPOSURE DURING PREGNANCY
     Route: 064
     Dates: start: 20170906, end: 20171218
  2. ORENCIA [Concomitant]
     Active Substance: ABATACEPT
     Indication: FOETAL EXPOSURE DURING PREGNANCY
     Dosage: UNK UNK, UNKNOWN FREQ.
     Route: 064
  3. CIMZIA [Suspect]
     Active Substance: CERTOLIZUMAB PEGOL
     Indication: FOETAL EXPOSURE DURING PREGNANCY
     Route: 064
     Dates: start: 20171023, end: 20180116
  4. PREDNISOLONE. [Concomitant]
     Active Substance: PREDNISOLONE
     Indication: MATERNAL EXPOSURE DURING BREAST FEEDING
     Route: 063
     Dates: start: 2018
  5. PREDNISOLONE. [Concomitant]
     Active Substance: PREDNISOLONE
     Indication: FOETAL EXPOSURE DURING PREGNANCY
     Route: 064
     Dates: end: 20180116
  6. CIMZIA [Suspect]
     Active Substance: CERTOLIZUMAB PEGOL
     Indication: MATERNAL EXPOSURE DURING BREAST FEEDING
     Route: 063
     Dates: start: 2018

REACTIONS (1)
  - Transient tachypnoea of the newborn [Unknown]

NARRATIVE: CASE EVENT DATE: 201801
